FAERS Safety Report 17700817 (Version 4)
Quarter: 2023Q4

REPORT INFORMATION
  Report Type: Spontaneous
  Country: ES (occurrence: ES)
  Receive Date: 20200424
  Receipt Date: 20231127
  Transmission Date: 20240110
  Serious: Yes (Life-Threatening, Hospitalization, Other)
  Sender: FDA-Public Use
  Company Number: ES-AEMPS-417180

PATIENT
  Age: 53 Year
  Sex: Female
  Weight: 67 kg

DRUGS (34)
  1. BOSENTAN [Interacting]
     Active Substance: BOSENTAN
     Indication: Pulmonary arterial hypertension
     Dosage: 250 MILLIGRAM, ONCE A DAY
     Route: 065
     Dates: start: 201801
  2. BOSENTAN [Interacting]
     Active Substance: BOSENTAN
     Dosage: UNK
     Route: 065
     Dates: start: 201804
  3. BOSENTAN [Suspect]
     Active Substance: BOSENTAN
     Indication: Pulmonary arterial hypertension
     Dosage: 250 MILLIGRAM, ONCE A DAY
     Route: 065
     Dates: start: 201801
  4. BOSENTAN [Suspect]
     Active Substance: BOSENTAN
     Dosage: 125 MILLIGRAM, TWO TIMES A DAY
     Route: 065
     Dates: start: 201801
  5. BOSENTAN [Suspect]
     Active Substance: BOSENTAN
     Dosage: 125 MILLIGRAM, TWO TIMES A DAY
     Route: 065
     Dates: start: 201804, end: 201809
  6. BOSENTAN [Suspect]
     Active Substance: BOSENTAN
     Dosage: 62.5 MILLIGRAM, TWO TIMES A DAY
     Route: 048
     Dates: start: 20180409, end: 20181019
  7. BOSENTAN [Suspect]
     Active Substance: BOSENTAN
     Dosage: 125 MILLIGRAM, TWO TIMES A DAY
     Route: 048
     Dates: start: 20180409, end: 20181008
  8. DARUNAVIR [Suspect]
     Active Substance: DARUNAVIR
     Indication: Antiretroviral therapy
     Dosage: 800 MILLIGRAM, ONCE A DAY
     Route: 065
     Dates: start: 201804
  9. TADALAFIL [Suspect]
     Active Substance: TADALAFIL
     Indication: Pulmonary arterial hypertension
     Dosage: 20 MILLIGRAM, ONCE A DAY
     Route: 065
     Dates: start: 201801
  10. TADALAFIL [Suspect]
     Active Substance: TADALAFIL
     Dosage: 20 MILLIGRAM, ONCE A DAY (REINTRODUCED DOSE)
     Route: 065
     Dates: start: 201804
  11. COBICISTAT\DARUNAVIR ETHANOLATE [Suspect]
     Active Substance: COBICISTAT\DARUNAVIR ETHANOLATE
     Indication: HIV infection
     Dosage: 150/800MG,QD
     Route: 048
     Dates: start: 20180501, end: 20181004
  12. COBICISTAT\DARUNAVIR ETHANOLATE [Suspect]
     Active Substance: COBICISTAT\DARUNAVIR ETHANOLATE
     Indication: Hepatitis C
     Dosage: 950 MILLIGRAM, ONCE A DAY
     Route: 065
     Dates: start: 201804, end: 201809
  13. GLECAPREVIR\PIBRENTASVIR [Interacting]
     Active Substance: GLECAPREVIR\PIBRENTASVIR
     Indication: Hepatitis C
     Dosage: UNK
     Route: 005
     Dates: start: 201801
  14. LOPINAVIR\RITONAVIR [Suspect]
     Active Substance: LOPINAVIR\RITONAVIR
     Indication: HIV infection
     Dosage: 400 MILLIGRAM, ONCE A DAY
     Route: 048
     Dates: start: 201801
  15. LOPINAVIR\RITONAVIR [Suspect]
     Active Substance: LOPINAVIR\RITONAVIR
     Indication: Hepatitis C
     Dosage: 800 MILLIGRAM, ONCE A DAY
     Route: 065
     Dates: start: 201801
  16. LOPINAVIR\RITONAVIR [Suspect]
     Active Substance: LOPINAVIR\RITONAVIR
     Dosage: TWO TIMES A DAY (400/100 MG)
     Route: 048
     Dates: start: 201801
  17. RILPIVIRINE [Suspect]
     Active Substance: RILPIVIRINE
     Indication: Antiretroviral therapy
     Dosage: 25 MILLIGRAM, ONCE A DAY
     Route: 065
     Dates: start: 201801, end: 201804
  18. RILPIVIRINE [Suspect]
     Active Substance: RILPIVIRINE
     Indication: HIV infection
  19. RALTEGRAVIR [Interacting]
     Active Substance: RALTEGRAVIR
     Indication: HIV infection
     Dosage: 800 MILLIGRAM, ONCE A DAY
     Route: 065
  20. RALTEGRAVIR [Interacting]
     Active Substance: RALTEGRAVIR
     Indication: Hepatitis C
     Dosage: UNK
     Route: 065
     Dates: start: 201801
  21. RALTEGRAVIR [Interacting]
     Active Substance: RALTEGRAVIR
     Dosage: 400 MILLIGRAM, TWO TIMES A DAY
     Route: 048
     Dates: start: 20180122, end: 20181004
  22. COBICISTAT [Suspect]
     Active Substance: COBICISTAT
     Indication: Antiretroviral therapy
     Dosage: 150 MILLIGRAM, ONCE A DAY
     Route: 065
     Dates: start: 201804
  23. COBICISTAT\DARUNAVIR ETHANOLATE [Interacting]
     Active Substance: COBICISTAT\DARUNAVIR ETHANOLATE
     Indication: HIV infection
     Dosage: UNK
     Route: 048
     Dates: start: 20180501, end: 20181004
  24. TRACLEER [Suspect]
     Active Substance: BOSENTAN
     Indication: Pulmonary arterial hypertension
     Dosage: 62.5 MILLIGRAM, TWO TIMES A DAY
     Route: 048
     Dates: start: 20180409, end: 20181019
  25. TRACLEER [Suspect]
     Active Substance: BOSENTAN
     Dosage: 125 MILLIGRAM, TWO TIMES A DAY
     Route: 048
     Dates: start: 20180409, end: 20181008
  26. RITONAVIR [Concomitant]
     Active Substance: RITONAVIR
     Indication: Antiretroviral therapy
     Dosage: 100 MILLIGRAM, TWO TIMES A DAY
     Route: 065
     Dates: start: 201801
  27. LOPINAVIR\RITONAVIR [Concomitant]
     Active Substance: LOPINAVIR\RITONAVIR
     Indication: Hepatitis C
     Dosage: 400/100 MG, TWO TIMES A DAY
     Route: 065
  28. LOPINAVIR\RITONAVIR [Concomitant]
     Active Substance: LOPINAVIR\RITONAVIR
     Dosage: 800 MILLIGRAM, ONCE A DAY
     Route: 065
     Dates: start: 201801
  29. ETRAVIRINE [Concomitant]
     Active Substance: ETRAVIRINE
     Indication: Product used for unknown indication
     Dosage: 200 MILLIGRAM, TWO TIMES A DAY
     Route: 065
  30. DOLUTEGRAVIR [Concomitant]
     Active Substance: DOLUTEGRAVIR
     Indication: Product used for unknown indication
     Dosage: 50 MILLIGRAM, TWO TIMES A DAY
     Route: 065
  31. BOSENTAN [Concomitant]
     Active Substance: BOSENTAN
     Indication: Pulmonary arterial hypertension
     Dosage: 125 MILLIGRAM, TWO TIMES A DAY
     Route: 048
     Dates: start: 20180409, end: 20181008
  32. ISENTRESS [Concomitant]
     Active Substance: RALTEGRAVIR POTASSIUM
     Indication: HIV infection
     Dosage: UNK
     Route: 048
     Dates: start: 20180122, end: 20181004
  33. LOPINAVIR [Concomitant]
     Active Substance: LOPINAVIR
     Indication: Antiretroviral therapy
     Dosage: 400 MILLIGRAM, TWO TIMES A DAY
     Route: 065
     Dates: start: 201801
  34. GLECAPREVIR [Concomitant]
     Active Substance: GLECAPREVIR
     Indication: Hepatitis C
     Dosage: UNK
     Route: 065
     Dates: start: 201801

REACTIONS (10)
  - Cardiac failure congestive [Recovered/Resolved]
  - Toxicity to various agents [Recovering/Resolving]
  - Respiratory failure [Recovering/Resolving]
  - Virologic failure [Recovered/Resolved]
  - Cardiac failure [Recovering/Resolving]
  - Gene mutation [Recovered/Resolved]
  - Fluid retention [Recovered/Resolved]
  - Drug resistance [Recovering/Resolving]
  - Blood HIV RNA increased [Recovering/Resolving]
  - Drug interaction [Recovered/Resolved]

NARRATIVE: CASE EVENT DATE: 20180101
